FAERS Safety Report 22871516 (Version 4)
Quarter: 2024Q1

REPORT INFORMATION
  Report Type: Report from Study
  Country: BR (occurrence: BR)
  Receive Date: 20230828
  Receipt Date: 20240306
  Transmission Date: 20240410
  Serious: Yes (Other)
  Sender: FDA-Public Use
  Company Number: BR-JNJFOC-20230857215

PATIENT
  Age: 77 Year
  Sex: Female
  Weight: 89 kg

DRUGS (8)
  1. GOLIMUMAB [Suspect]
     Active Substance: GOLIMUMAB
     Indication: Psoriatic arthropathy
     Dosage: LAST DRUG APPLICATION: 21-DEC-2023
     Route: 058
     Dates: start: 20230721
  2. GOLIMUMAB [Suspect]
     Active Substance: GOLIMUMAB
  3. GOLIMUMAB [Suspect]
     Active Substance: GOLIMUMAB
  4. GOLIMUMAB [Suspect]
     Active Substance: GOLIMUMAB
  5. SIMPONI [Suspect]
     Active Substance: GOLIMUMAB
     Indication: Psoriatic arthropathy
     Route: 058
     Dates: start: 20230712
  6. SIMPONI [Suspect]
     Active Substance: GOLIMUMAB
  7. SIMPONI [Suspect]
     Active Substance: GOLIMUMAB
  8. SIMPONI [Suspect]
     Active Substance: GOLIMUMAB

REACTIONS (7)
  - Pneumonia [Recovered/Resolved]
  - Tremor [Recovered/Resolved]
  - Fall [Recovered/Resolved]
  - Hypersensitivity [Recovering/Resolving]
  - Urticaria [Unknown]
  - Arthralgia [Not Recovered/Not Resolved]
  - Asthenia [Recovered/Resolved]

NARRATIVE: CASE EVENT DATE: 20230804
